FAERS Safety Report 8961232 (Version 1)
Quarter: 2012Q4

REPORT INFORMATION
  Report Type: 
  Country: TR (occurrence: TR)
  Receive Date: 20121212
  Receipt Date: 20121212
  Transmission Date: 20130627
  Serious: Yes (Other)
  Sender: FDA-Public Use
  Company Number: TR-BAYER-2012-128430

PATIENT
  Age: 63 Year
  Sex: Male

DRUGS (2)
  1. ACETYLSALICYLIC ACID (} 100 MG) [Suspect]
     Indication: RETINAL VEIN OCCLUSION
     Dosage: UNK
  2. ACETYLSALICYLIC ACID (} 100 MG) [Suspect]
     Indication: RETINAL VEIN OCCLUSION
     Dosage: UNK
     Dates: start: 2011

REACTIONS (2)
  - Angioedema [None]
  - Urticaria [None]
